FAERS Safety Report 6396499-4 (Version None)
Quarter: 2009Q4

REPORT INFORMATION
  Report Type: 
  Country: None (occurrence: None)
  Receive Date: 20091012
  Receipt Date: 20091007
  Transmission Date: 20100525
  Serious: Yes (Life-Threatening, Other)
  Sender: FDA-Public Use
  Company Number: FR-AVENTIS-200916109EU

PATIENT
  Age: 53 Year
  Sex: Male

DRUGS (3)
  1. ENOXAPARIN SODIUM [Suspect]
     Indication: MYOCARDIAL INFARCTION
     Route: 040
     Dates: start: 20091002, end: 20091002
  2. PLAVIX [Suspect]
     Indication: MYOCARDIAL INFARCTION
     Route: 048
     Dates: start: 20091002
  3. ASPISOL                            /00002703/ [Suspect]
     Indication: MYOCARDIAL INFARCTION
     Route: 042
     Dates: start: 20091002, end: 20091002

REACTIONS (1)
  - THROMBOSIS IN DEVICE [None]
